FAERS Safety Report 5057430-7 (Version None)
Quarter: 2006Q3

REPORT INFORMATION
  Report Type: 
  Country: None (occurrence: None)
  Receive Date: 20060721
  Receipt Date: 20050929
  Transmission Date: 20061208
  Serious: Yes (Hospitalization)
  Sender: FDA-Public Use
  Company Number: US-GLAXOSMITHKLINE-A0576433A

PATIENT
  Sex: Female

DRUGS (2)
  1. AVANDIA [Suspect]
     Indication: DRUG USE FOR UNKNOWN INDICATION
     Route: 048
  2. THYROID TAB [Concomitant]

REACTIONS (4)
  - DYSPNOEA [None]
  - FLUID RETENTION [None]
  - SWELLING [None]
  - WEIGHT INCREASED [None]
